FAERS Safety Report 11356263 (Version 1)
Quarter: 2015Q3

REPORT INFORMATION
  Report Type: Spontaneous
  Country: US (occurrence: US)
  Receive Date: 20150807
  Receipt Date: 20150807
  Transmission Date: 20151125
  Serious: No
  Sender: FDA-Public Use
  Company Number: US-PFIZER INC-2015261347

PATIENT

DRUGS (1)
  1. CELECOXIB. [Suspect]
     Active Substance: CELECOXIB
     Indication: PAIN
     Dosage: 200 MG, UNK

REACTIONS (4)
  - Abdominal distension [Unknown]
  - Drug ineffective [Unknown]
  - Diarrhoea [Unknown]
  - Abdominal pain upper [Unknown]
